FAERS Safety Report 5424736-9 (Version None)
Quarter: 2007Q3

REPORT INFORMATION
  Report Type: 
  Country: None (occurrence: None)
  Receive Date: 20070725
  Receipt Date: 20060918
  Transmission Date: 20080115
  Serious: Yes (Hospitalization)
  Sender: FDA-Public Use
  Company Number: US-JNJFOC-200060701400

PATIENT
  Age: 80 Year
  Sex: Female

DRUGS (1)
  1. IMODIUM A-D [Suspect]
     Indication: DIARRHOEA
     Dosage: 12-16 MG, IN 24 HOURS
     Dates: start: 20020628, end: 20020628

REACTIONS (4)
  - ABDOMINAL PAIN [None]
  - FLATULENCE [None]
  - NAUSEA [None]
  - OVERDOSE [None]
